FAERS Safety Report 4490118-X (Version None)
Quarter: 2004Q4

REPORT INFORMATION
  Report Type: 
  Country: None (occurrence: None)
  Receive Date: 20041028
  Receipt Date: 20041019
  Transmission Date: 20050328
  Serious: Yes (Other)
  Sender: FDA-Public Use
  Company Number: 2004240264US

PATIENT
  Sex: Female

DRUGS (2)
  1. DAYPRO [Suspect]
     Dosage: ORAL
     Route: 048
  2. IRON [Concomitant]

REACTIONS (1)
  - HAEMORRHAGE [None]
